FAERS Safety Report 6653321-6 (Version None)
Quarter: 2010Q1

REPORT INFORMATION
  Report Type: 
  Country: None (occurrence: None)
  Receive Date: 20100326
  Receipt Date: 20100322
  Transmission Date: 20100710
  Serious: Yes (Other)
  Sender: FDA-Public Use
  Company Number: GB-ROCHE-690523

PATIENT
  Sex: Female

DRUGS (3)
  1. XENICAL [Suspect]
     Indication: DRUG USE FOR UNKNOWN INDICATION
     Route: 065
     Dates: start: 20100304
  2. LEVOTHYROXINE SODIUM [Concomitant]
  3. BENDROFLUAZIDE [Concomitant]

REACTIONS (1)
  - VAGINAL HAEMORRHAGE [None]
